FAERS Safety Report 7651162-4 (Version None)
Quarter: 2011Q3

REPORT INFORMATION
  Report Type: 
  Country: None (occurrence: None)
  Receive Date: 20110727
  Receipt Date: 20110707
  Transmission Date: 20111222
  Serious: Yes (Disabling)
  Sender: FDA-Public Use
  Company Number: 973855

PATIENT
  Age: 29 Year
  Sex: Female

DRUGS (5)
  1. DAUNORUBICIN HYDROCHLORIDE [Concomitant]
  2. CYTARABINE [Concomitant]
  3. GENTAMICIN [Concomitant]
  4. ETOPOSIDE [Suspect]
     Indication: MYELOID LEUKAEMIA
     Dosage: INTRAVENOUS (NOT OTHERWISE SPECIFIED)
     Route: 042
  5. PIPERACILLIN AND TAZOBACTAM [Concomitant]

REACTIONS (1)
  - ENTEROCOLITIS HAEMORRHAGIC [None]
